APPROVED DRUG PRODUCT: FAMOTIDINE
Active Ingredient: FAMOTIDINE
Strength: 20MG
Dosage Form/Route: TABLET;ORAL
Application: A075062 | Product #002
Applicant: WATSON LABORATORIES INC
Approved: Apr 16, 2001 | RLD: No | RS: No | Type: DISCN